FAERS Safety Report 6505983-1 (Version None)
Quarter: 2009Q4

REPORT INFORMATION
  Report Type: 
  Country: None (occurrence: None)
  Receive Date: 20091218
  Receipt Date: 20091212
  Transmission Date: 20100525
  Serious: Yes (Other)
  Sender: FDA-Public Use
  Company Number: US-PFIZER INC-2009309209

PATIENT
  Sex: Female
  Weight: 54.422 kg

DRUGS (7)
  1. CHANTIX [Suspect]
     Indication: SMOKING CESSATION THERAPY
     Route: 048
     Dates: start: 20090101
  2. CHANTIX [Suspect]
     Dosage: 1 MG, 2X/DAY
     Route: 048
     Dates: start: 20090101
  3. CHANTIX [Suspect]
     Dosage: 0.5 MG, 1X/DAY
     Route: 048
     Dates: start: 20090101
  4. CLONAZEPAM [Concomitant]
     Dosage: UNK
     Route: 048
  5. METHADONE [Concomitant]
     Dosage: UNK
     Route: 048
  6. TRAZODONE [Concomitant]
     Dosage: UNK
     Route: 048
  7. COPAXONE [Concomitant]
     Dosage: UNK
     Route: 048

REACTIONS (2)
  - CRYING [None]
  - FRACTURE [None]
